FAERS Safety Report 6358314-4 (Version None)
Quarter: 2009Q3

REPORT INFORMATION
  Report Type: 
  Country: None (occurrence: None)
  Receive Date: 20090916
  Receipt Date: 20090911
  Transmission Date: 20100115
  Serious: Yes (Other)
  Sender: FDA-Public Use
  Company Number: PHHY2009AT38510

PATIENT
  Sex: Female

DRUGS (2)
  1. FEMARA [Suspect]
     Indication: BREAST CANCER
     Dosage: 1 TABLET DAILY
     Route: 048
     Dates: start: 20060401, end: 20090906
  2. ACETYLSALICYLATE [Concomitant]

REACTIONS (4)
  - DYSAESTHESIA [None]
  - HYPOAESTHESIA [None]
  - PARAESTHESIA [None]
  - POLYNEUROPATHY [None]
